FAERS Safety Report 10306298 (Version 2)
Quarter: 2014Q3

REPORT INFORMATION
  Report Type: Spontaneous
  Country: US (occurrence: US)
  Receive Date: 20140715
  Receipt Date: 20140722
  Transmission Date: 20150326
  Serious: Yes (Hospitalization)
  Sender: FDA-Public Use
  Company Number: US-TEVA-493620USA

PATIENT
  Age: 82 Year
  Sex: Female
  Weight: 42.68 kg

DRUGS (3)
  1. PROAIR HFA [Suspect]
     Active Substance: ALBUTEROL SULFATE
     Indication: CHRONIC OBSTRUCTIVE PULMONARY DISEASE
     Dates: end: 20140706
  2. PROAIR HFA [Suspect]
     Active Substance: ALBUTEROL SULFATE
     Indication: ASTHMA
  3. DIGOXIN. [Concomitant]
     Active Substance: DIGOXIN

REACTIONS (10)
  - Throat irritation [Not Recovered/Not Resolved]
  - Oral discomfort [Not Recovered/Not Resolved]
  - Nausea [Not Recovered/Not Resolved]
  - Gingival pain [Not Recovered/Not Resolved]
  - Sensitivity of teeth [Not Recovered/Not Resolved]
  - Toothache [Unknown]
  - Spinal fracture [Recovering/Resolving]
  - Fall [Recovering/Resolving]
  - Oropharyngeal pain [Unknown]
  - Gingival pain [Unknown]

NARRATIVE: CASE EVENT DATE: 20140429
